FAERS Safety Report 11293045 (Version 1)
Quarter: 2015Q3

REPORT INFORMATION
  Report Type: Spontaneous
  Country: US (occurrence: US)
  Receive Date: 20150722
  Receipt Date: 20150722
  Transmission Date: 20151125
  Serious: Yes (Hospitalization, Other)
  Sender: FDA-Public Use
  Company Number: US-ASTRAZENECA-2015SE68820

PATIENT
  Age: 998 Month
  Sex: Female

DRUGS (4)
  1. ADVAIR DISKUS [Suspect]
     Active Substance: FLUTICASONE PROPIONATE\SALMETEROL XINAFOATE
     Dosage: 250/50UG
     Route: 065
  2. OXYGEN. [Concomitant]
     Active Substance: OXYGEN
  3. DALIRESP [Suspect]
     Active Substance: ROFLUMILAST
     Route: 048
  4. UNSPECIFIED MEDICATIONS [Concomitant]
     Active Substance: UNSPECIFIED INGREDIENT

REACTIONS (14)
  - Drug hypersensitivity [Unknown]
  - Gait disturbance [Not Recovered/Not Resolved]
  - Chronic obstructive pulmonary disease [Not Recovered/Not Resolved]
  - Cough [Unknown]
  - Pelvic fracture [Unknown]
  - Weight decreased [Unknown]
  - Fall [Unknown]
  - Nasopharyngitis [Unknown]
  - Respiratory tract congestion [Unknown]
  - Sneezing [Unknown]
  - Decreased appetite [Unknown]
  - Vertigo [Not Recovered/Not Resolved]
  - Upper limb fracture [Unknown]
  - Pain in extremity [Not Recovered/Not Resolved]

NARRATIVE: CASE EVENT DATE: 201502
